FAERS Safety Report 16535254 (Version 1)
Quarter: 2019Q3

REPORT INFORMATION
  Report Type: Spontaneous
  Country: US (occurrence: US)
  Receive Date: 20190705
  Receipt Date: 20190705
  Transmission Date: 20191004
  Serious: No
  Sender: FDA-Public Use
  Company Number: US-GW PHARMA-201902USGW0452

PATIENT

DRUGS (4)
  1. EPIDIOLEX [Suspect]
     Active Substance: CANNABIDIOL
     Indication: LENNOX-GASTAUT SYNDROME
     Dosage: 110 MILLIGRAM, BID
     Route: 048
     Dates: start: 20190202, end: 201902
  2. EPIDIOLEX [Suspect]
     Active Substance: CANNABIDIOL
     Dosage: 330 MILLIGRAM, BID
     Route: 048
     Dates: start: 201902, end: 201902
  3. EPIDIOLEX [Suspect]
     Active Substance: CANNABIDIOL
     Dosage: 440 MILLIGRAM, BID
     Route: 048
     Dates: start: 201902, end: 20190225
  4. EPIDIOLEX [Suspect]
     Active Substance: CANNABIDIOL
     Dosage: 220 MILLIGRAM, BID
     Route: 048
     Dates: start: 201902, end: 201902

REACTIONS (3)
  - Body temperature increased [Unknown]
  - Chromaturia [Unknown]
  - Liver function test increased [Unknown]

NARRATIVE: CASE EVENT DATE: 20190224
